FAERS Safety Report 19919513 (Version 1)
Quarter: 2021Q4

REPORT INFORMATION
  Report Type: Spontaneous
  Country: US (occurrence: US)
  Receive Date: 20211005
  Receipt Date: 20211005
  Transmission Date: 20220303
  Serious: Yes (Other)
  Sender: FDA-Public Use
  Company Number: US-MDD US OPERATIONS-MDD202108-001640

PATIENT
  Age: 70 Year
  Sex: Male

DRUGS (5)
  1. APOKYN [Suspect]
     Active Substance: APOMORPHINE HYDROCHLORIDE
     Indication: Parkinson^s disease
     Dosage: NOT PROVIDED
  2. APOKYN [Suspect]
     Active Substance: APOMORPHINE HYDROCHLORIDE
     Dosage: NOT  PROVIDED
     Dates: start: 202105
  3. Magnesium Tablets [Concomitant]
     Dosage: NOT PROVIDED
  4. RYTARY [Concomitant]
     Active Substance: CARBIDOPA\LEVODOPA
  5. AZILECT [Concomitant]
     Active Substance: RASAGILINE MESYLATE
     Dosage: NOT PROVIDED

REACTIONS (9)
  - Surgery [Unknown]
  - Abdominal discomfort [Unknown]
  - Parkinson^s disease [Unknown]
  - Asthenia [Unknown]
  - Somnolence [Unknown]
  - Nausea [Unknown]
  - Yawning [Unknown]
  - Fatigue [Unknown]
  - Therapeutic product effect decreased [Unknown]

NARRATIVE: CASE EVENT DATE: 20210101
